FAERS Safety Report 20762255 (Version 13)
Quarter: 2025Q2

REPORT INFORMATION
  Report Type: Report from Study
  Country: US (occurrence: US)
  Receive Date: 20220428
  Receipt Date: 20250527
  Transmission Date: 20250717
  Serious: Yes (Hospitalization, Other)
  Sender: TAKEDA
  Company Number: US-TAKEDA-2022TUS027896

PATIENT
  Age: 75 Year
  Sex: Female
  Weight: 100 kg

DRUGS (18)
  1. PONATINIB [Suspect]
     Active Substance: PONATINIB
     Indication: Philadelphia positive acute lymphocytic leukaemia
     Dosage: 30 MILLIGRAM, QD
     Dates: start: 20220214, end: 20220712
  2. PONATINIB [Suspect]
     Active Substance: PONATINIB
     Indication: Chronic myeloid leukaemia
     Dosage: 15 MILLIGRAM, QD
     Dates: start: 20220721
  3. PONATINIB [Suspect]
     Active Substance: PONATINIB
     Indication: Acute lymphocytic leukaemia
     Dosage: 15 MILLIGRAM, QD
  4. PONATINIB [Suspect]
     Active Substance: PONATINIB
     Dosage: 15 MILLIGRAM, QD
     Dates: start: 20231205
  5. ELIQUIS [Concomitant]
     Active Substance: APIXABAN
     Indication: Coagulopathy
  6. ASPIRIN [Concomitant]
     Active Substance: ASPIRIN
     Indication: Heart valve replacement
  7. CHOLECALCIFEROL [Concomitant]
     Active Substance: CHOLECALCIFEROL
  8. DAPSONE [Concomitant]
     Active Substance: DAPSONE
  9. ACYCLOVIR [Concomitant]
     Active Substance: ACYCLOVIR
  10. LETROZOLE [Concomitant]
     Active Substance: LETROZOLE
     Indication: Breast cancer
  11. ATENOLOL [Concomitant]
     Active Substance: ATENOLOL
     Dosage: 25 MILLIGRAM, QD
  12. ATENOLOL [Concomitant]
     Active Substance: ATENOLOL
     Dosage: 50 MILLIGRAM, QD
  13. ATORVASTATIN [Concomitant]
     Active Substance: ATORVASTATIN
  14. CALCIUM CITRATE\CHOLECALCIFEROL [Concomitant]
     Active Substance: CALCIUM CITRATE\CHOLECALCIFEROL
  15. FUROSEMIDE [Concomitant]
     Active Substance: FUROSEMIDE
  16. POTASSIUM CHLORIDE [Concomitant]
     Active Substance: POTASSIUM CHLORIDE
  17. APIXABAN [Concomitant]
     Active Substance: APIXABAN
  18. AMIODARONE [Concomitant]
     Active Substance: AMIODARONE
     Indication: Atrial fibrillation

REACTIONS (29)
  - COVID-19 [Unknown]
  - Candida infection [Unknown]
  - Staphylococcal infection [Unknown]
  - Tooth fracture [Unknown]
  - Cataract [Unknown]
  - Blood pressure increased [Unknown]
  - Atrial fibrillation [Unknown]
  - Pneumonia [Unknown]
  - Dyspnoea [Recovered/Resolved]
  - Upper-airway cough syndrome [Unknown]
  - Multiple allergies [Unknown]
  - Product dose omission issue [Unknown]
  - Tongue biting [Recovered/Resolved]
  - Tinea cruris [Not Recovered/Not Resolved]
  - Eczema nummular [Not Recovered/Not Resolved]
  - Illness [Unknown]
  - Rash [Not Recovered/Not Resolved]
  - Contusion [Recovered/Resolved]
  - Skin discolouration [Not Recovered/Not Resolved]
  - Burning sensation [Recovered/Resolved]
  - Malaise [Unknown]
  - Skin exfoliation [Not Recovered/Not Resolved]
  - Anxiety [Unknown]
  - Fatigue [Unknown]
  - Pain [Unknown]
  - Arthralgia [Unknown]
  - Erythema [Recovered/Resolved]
  - Diarrhoea [Unknown]
  - Visual impairment [Unknown]

NARRATIVE: CASE EVENT DATE: 20220316
